FAERS Safety Report 8385612-5 (Version None)
Quarter: 2012Q2

REPORT INFORMATION
  Report Type: 
  Country: None (occurrence: None)
  Receive Date: 20120525
  Receipt Date: 20120521
  Transmission Date: 20120825
  Serious: No
  Sender: FDA-Public Use
  Company Number: US-PFIZER INC-2012102239

PATIENT
  Sex: Female
  Weight: 46 kg

DRUGS (2)
  1. LIPITOR [Suspect]
     Indication: HYPERTENSION
     Dosage: 10 MG, DAILY
  2. LIPITOR [Suspect]
     Indication: BLOOD CHOLESTEROL INCREASED

REACTIONS (1)
  - MUSCLE SPASMS [None]
